FAERS Safety Report 8133166-0 (Version None)
Quarter: 2012Q1

REPORT INFORMATION
  Report Type: 
  Country: None (occurrence: None)
  Receive Date: 20120213
  Receipt Date: 20120208
  Transmission Date: 20120608
  Serious: Yes (Hospitalization)
  Sender: FDA-Public Use
  Company Number: PHEH2012US003367

PATIENT
  Sex: Male

DRUGS (1)
  1. GLEEVEC [Suspect]
     Indication: CONGENITAL PIGMENTATION DISORDER
     Dosage: 400 MG DAILY
     Route: 048
     Dates: start: 20111019

REACTIONS (1)
  - MASTOCYTOSIS [None]
